FAERS Safety Report 17896205 (Version 2)
Quarter: 2020Q2

REPORT INFORMATION
  Report Type: Spontaneous
  Country: CA (occurrence: CA)
  Receive Date: 20200615
  Receipt Date: 20200626
  Transmission Date: 20200714
  Serious: Yes (Other)
  Sender: FDA-Public Use
  Company Number: CA-PFIZER INC-2020221813

PATIENT
  Age: 11 Year
  Sex: Male

DRUGS (13)
  1. IMURAN [Concomitant]
     Active Substance: AZATHIOPRINE
     Dosage: 150 MG, 1X/DAY
     Route: 065
     Dates: start: 201907, end: 202003
  2. IMURAN [Concomitant]
     Active Substance: AZATHIOPRINE
     Indication: CROHN^S DISEASE
     Dosage: UNK
     Dates: start: 201907, end: 202002
  3. BUDESONIDE. [Concomitant]
     Active Substance: BUDESONIDE
     Indication: CROHN^S DISEASE
     Dosage: UNK
     Dates: start: 201907, end: 201910
  4. BUDESONIDE. [Concomitant]
     Active Substance: BUDESONIDE
     Dosage: UNK
     Route: 065
     Dates: end: 201909
  5. INFLECTRA [Concomitant]
     Active Substance: INFLIXIMAB-DYYB
     Indication: CROHN^S DISEASE
     Dosage: 400 MG (AT WEEK 0, 2,6, THEN EVERY 8 WEEKS)
     Route: 042
     Dates: start: 20200608
  6. METHOTREXATE SODIUM. [Suspect]
     Active Substance: METHOTREXATE SODIUM
     Dosage: 15 MG
     Route: 058
     Dates: start: 201902, end: 201904
  7. METHOTREXATE SODIUM. [Suspect]
     Active Substance: METHOTREXATE SODIUM
     Indication: CROHN^S DISEASE
     Dosage: 20 MG
     Route: 058
     Dates: start: 201206, end: 201212
  8. METHOTREXATE SODIUM. [Suspect]
     Active Substance: METHOTREXATE SODIUM
     Dosage: 25 MG
     Route: 058
     Dates: start: 201810, end: 201902
  9. PREDNISONE. [Concomitant]
     Active Substance: PREDNISONE
     Indication: CROHN^S DISEASE
     Dosage: UNK
  10. METHOTREXATE SODIUM. [Suspect]
     Active Substance: METHOTREXATE SODIUM
     Dosage: 15 MG
     Route: 058
     Dates: start: 201212, end: 201709
  11. METHOTREXATE SODIUM. [Suspect]
     Active Substance: METHOTREXATE SODIUM
     Dosage: UNK
     Dates: start: 2017
  12. BUDESONIDE. [Concomitant]
     Active Substance: BUDESONIDE
     Dosage: 9 MG (1 MONTH AND THEN TAPERED TO 6 MG FOR 1 MONTH, AND THEN 3 MG FOR 1 MONTH)
     Dates: start: 201907
  13. METHOTREXATE SODIUM. [Suspect]
     Active Substance: METHOTREXATE SODIUM
     Dosage: 25 MG
     Route: 058
     Dates: start: 201904, end: 201904

REACTIONS (26)
  - Constipation [Unknown]
  - Condition aggravated [Unknown]
  - Loss of personal independence in daily activities [Unknown]
  - Swelling face [Unknown]
  - Fatigue [Unknown]
  - Dyspnoea [Unknown]
  - Personality change [Unknown]
  - Depression [Unknown]
  - Agitation [Unknown]
  - Mood swings [Unknown]
  - Disturbance in attention [Unknown]
  - Asthenia [Unknown]
  - Nausea [Unknown]
  - Immunosuppression [Unknown]
  - Impaired healing [Unknown]
  - Tremor [Unknown]
  - Restlessness [Unknown]
  - Memory impairment [Unknown]
  - Cushingoid [Unknown]
  - Increased tendency to bruise [Unknown]
  - Product use in unapproved indication [Unknown]
  - Product use issue [Unknown]
  - Off label use [Unknown]
  - Muscle atrophy [Unknown]
  - Muscular weakness [Unknown]
  - Irritability [Unknown]

NARRATIVE: CASE EVENT DATE: 201206
